FAERS Safety Report 12212463 (Version 1)
Quarter: 2016Q1

REPORT INFORMATION
  Report Type: Spontaneous
  Country: DK (occurrence: DK)
  Receive Date: 20160326
  Receipt Date: 20160326
  Transmission Date: 20160526
  Serious: Yes (Other)
  Sender: FDA-Public Use
  Company Number: DK-BRISTOL-MYERS SQUIBB COMPANY-BMS-2016-021995

PATIENT
  Age: 69 Year
  Sex: Female

DRUGS (3)
  1. COPEGUS [Suspect]
     Active Substance: RIBAVIRIN
     Indication: CHRONIC HEPATITIS C
     Dosage: STYRKE: 400 MG
     Route: 048
     Dates: start: 20160202, end: 20160301
  2. SOVALDI [Suspect]
     Active Substance: SOFOSBUVIR
     Indication: CHRONIC HEPATITIS C
     Dosage: STYRKE: 400 MG
     Route: 048
     Dates: start: 20160202, end: 20160301
  3. DAKLINZA [Suspect]
     Active Substance: DACLATASVIR
     Indication: CHRONIC HEPATITIS C
     Dosage: STYRKE: 60 MG
     Route: 048
     Dates: start: 20160202, end: 20160301

REACTIONS (4)
  - Hypoacusis [Unknown]
  - Memory impairment [Unknown]
  - Fatigue [Unknown]
  - Depressed mood [Unknown]

NARRATIVE: CASE EVENT DATE: 20160216
